FAERS Safety Report 8447476-0 (Version None)
Quarter: 2012Q2

REPORT INFORMATION
  Report Type: 
  Country: None (occurrence: None)
  Receive Date: 20120613
  Receipt Date: 20120613
  Transmission Date: 20120825
  Serious: Yes (Other)
  Sender: FDA-Public Use
  Company Number: None

PATIENT

DRUGS (1)
  1. MORPHINE SULFATE [Suspect]
     Indication: PAIN
     Dosage: 60MG TID PO
     Route: 048
     Dates: start: 20120530, end: 20120602

REACTIONS (6)
  - HYPERHIDROSIS [None]
  - DIZZINESS [None]
  - NAUSEA [None]
  - PRODUCT QUALITY ISSUE [None]
  - VOMITING [None]
  - DRUG WITHDRAWAL SYNDROME [None]
